FAERS Safety Report 18619456 (Version 2)
Quarter: 2020Q4

REPORT INFORMATION
  Report Type: Spontaneous
  Country: US (occurrence: US)
  Receive Date: 20201215
  Receipt Date: 20201221
  Transmission Date: 20210114
  Serious: Yes (Hospitalization)
  Sender: FDA-Public Use
  Company Number: US-PFIZER INC-2020492545

PATIENT
  Age: 69 Year
  Sex: Female
  Weight: 128.37 kg

DRUGS (1)
  1. CHANTIX [Suspect]
     Active Substance: VARENICLINE TARTRATE
     Indication: SMOKING CESSATION THERAPY
     Dosage: UNK
     Dates: start: 201907

REACTIONS (2)
  - Cerebrovascular accident [Unknown]
  - Body height decreased [Unknown]

NARRATIVE: CASE EVENT DATE: 20200802
